FAERS Safety Report 6132600-5 (Version None)
Quarter: 2009Q1

REPORT INFORMATION
  Report Type: 
  Country: None (occurrence: None)
  Receive Date: 20090324
  Receipt Date: 20090313
  Transmission Date: 20090719
  Serious: Yes (Hospitalization)
  Sender: FDA-Public Use
  Company Number: GXKR2009IT03317

PATIENT
  Age: 43 Year
  Sex: Male

DRUGS (2)
  1. PREDNISONE [Suspect]
     Indication: COLITIS ULCERATIVE
     Dosage: 60 MG, INTRAVENOUS; 50 MG, ORAL
  2. MESALAMINE [Concomitant]

REACTIONS (5)
  - COLITIS ULCERATIVE [None]
  - CONDITION AGGRAVATED [None]
  - KAPOSI'S SARCOMA [None]
  - PROCTOCOLECTOMY [None]
  - PSEUDOPOLYP [None]
